FAERS Safety Report 4885717-7 (Version None)
Quarter: 2006Q1

REPORT INFORMATION
  Report Type: 
  Country: None (occurrence: None)
  Receive Date: 20060117
  Receipt Date: 20060104
  Transmission Date: 20060701
  Serious: Yes (Other)
  Sender: FDA-Public Use
  Company Number: 2006AL000041

PATIENT
  Age: 39 Year
  Sex: Female

DRUGS (6)
  1. PHENOBARBITAL TABLETS USP, 30 MG (PUREPAC) [Suspect]
     Indication: EPILEPSY
  2. CARBAMAZEPINE [Suspect]
     Indication: EPILEPSY
  3. VALPROIC ACID [Suspect]
     Indication: EPILEPSY
  4. ETHOSUXIMIDE [Concomitant]
  5. OXCARBAZEPINE [Concomitant]
  6. LAMOTRIGINE [Concomitant]

REACTIONS (8)
  - CONVULSION [None]
  - DRUG EXPOSURE DURING PREGNANCY [None]
  - DRUG EXPOSURE VIA BREAST MILK [None]
  - FALL [None]
  - OSTEOLYSIS [None]
  - PELVIC FRACTURE [None]
  - PREGNANCY [None]
  - THORACIC VERTEBRAL FRACTURE [None]
